FAERS Safety Report 9170695 (Version 1)
Quarter: 2013Q1

REPORT INFORMATION
  Report Type: Spontaneous
  Country: GB (occurrence: None)
  Receive Date: 20130312
  Receipt Date: 20130312
  Transmission Date: 20140127
  Serious: No
  Sender: FDA-Public Use
  Company Number: A1014656B

PATIENT
  Sex: 0

DRUGS (3)
  1. LEVETIRACETAM [Suspect]
     Dosage: TRANSPLACENTARY
  2. LAMOTRIGINE (LAMOTRIGINE) [Suspect]
     Dosage: TRANSPLACENTARY
  3. CLONAZEPAM (CLONAZEPAM) (CLONAZEPAM) [Suspect]
     Dosage: TRANSPLACENTARY

REACTIONS (2)
  - Exposure during pregnancy [None]
  - Spina bifida [None]
